FAERS Safety Report 10382149 (Version 1)
Quarter: 2014Q3

REPORT INFORMATION
  Report Type: Spontaneous
  Country: GB (occurrence: GB)
  Receive Date: 20140813
  Receipt Date: 20140813
  Transmission Date: 20150326
  Serious: Yes (Life-Threatening, Hospitalization)
  Sender: FDA-Public Use
  Company Number: GB-WATSON-2014-17457

PATIENT
  Age: 40 Year
  Sex: Male

DRUGS (4)
  1. SIMVASTATIN (UNKNOWN) [Interacting]
     Active Substance: SIMVASTATIN
     Indication: HYPERCHOLESTEROLAEMIA
     Dosage: 20 MG, DAILY
     Route: 065
  2. PIRENZEPIN [Interacting]
     Active Substance: PIRENZEPINE
     Indication: PRODUCT USED FOR UNKNOWN INDICATION
     Dosage: 150 MG, DAILY
     Route: 065
  3. LAMOTRIGINE (UNKNOWN) [Interacting]
     Active Substance: LAMOTRIGINE
     Indication: PRODUCT USED FOR UNKNOWN INDICATION
     Dosage: 150 MG, DAILY
     Route: 065
  4. CLOZAPINE (UNKNOWN) [Suspect]
     Active Substance: CLOZAPINE
     Indication: SCHIZOPHRENIA, PARANOID TYPE
     Dosage: 300 MG, BID
     Route: 065

REACTIONS (9)
  - Faecaloma [None]
  - Pleural effusion [None]
  - Respiratory arrest [Recovered/Resolved]
  - Drug interaction [Recovered/Resolved]
  - Ileus paralytic [Recovered/Resolved]
  - Lung consolidation [None]
  - Pneumonia [Recovered/Resolved]
  - Hyperthyroidism [None]
  - General physical health deterioration [None]
